FAERS Safety Report 23078300 (Version 1)
Quarter: 2023Q4

REPORT INFORMATION
  Report Type: Spontaneous
  Country: US (occurrence: US)
  Receive Date: 20231018
  Receipt Date: 20231018
  Transmission Date: 20240109
  Serious: No
  Sender: FDA-Public Use
  Company Number: US-CIPLA LTD.-2023US05275

PATIENT

DRUGS (3)
  1. DARUNAVIR [Suspect]
     Active Substance: DARUNAVIR
     Indication: HIV infection
     Dosage: UNK (800 MG/DAY) (COURSE 1)
     Route: 048
     Dates: start: 20220809, end: 20230125
  2. RITONAVIR [Suspect]
     Active Substance: RITONAVIR
     Indication: HIV infection
     Dosage: UNK, (COURSE 1)
     Route: 048
     Dates: start: 20220809, end: 20230105
  3. EMTRICITABINE\TENOFOVIR [Suspect]
     Active Substance: EMTRICITABINE\TENOFOVIR
     Indication: HIV infection
     Dosage: UNK (200 MG/DAY) (COURSE 1)
     Route: 048
     Dates: start: 20220809, end: 20230125

REACTIONS (2)
  - Exposure during pregnancy [Unknown]
  - No adverse event [Unknown]
